FAERS Safety Report 21174817 (Version 4)
Quarter: 2022Q4

REPORT INFORMATION
  Report Type: Report from Study
  Country: CA (occurrence: CA)
  Receive Date: 20220805
  Receipt Date: 20221019
  Transmission Date: 20230113
  Serious: Yes (Hospitalization, Other)
  Sender: FDA-Public Use
  Company Number: CA-NOVARTISPH-NVSC2022CA175416

PATIENT
  Sex: Male

DRUGS (3)
  1. HYRIMOZ [Suspect]
     Active Substance: ADALIMUMAB-ADAZ
     Indication: Crohn^s disease
     Dosage: 40 MG
     Route: 058
     Dates: start: 20220623
  2. HYRIMOZ [Suspect]
     Active Substance: ADALIMUMAB-ADAZ
     Dosage: 40 MG
     Route: 058
     Dates: start: 20220804
  3. CORTISONE [Concomitant]
     Active Substance: CORTISONE
     Indication: Product used for unknown indication
     Dosage: UNK (DECREASING DOSE)
     Route: 065

REACTIONS (8)
  - Bile duct stone [Not Recovered/Not Resolved]
  - Cholelithiasis [Unknown]
  - Infection [Not Recovered/Not Resolved]
  - Blindness transient [Unknown]
  - Road traffic accident [Unknown]
  - Paraesthesia [Unknown]
  - Headache [Unknown]
  - SARS-CoV-2 test positive [Not Recovered/Not Resolved]
